FAERS Safety Report 15725784 (Version 2)
Quarter: 2019Q1

REPORT INFORMATION
  Report Type: Spontaneous
  Country: US (occurrence: US)
  Receive Date: 20181216
  Receipt Date: 20190210
  Transmission Date: 20190417
  Serious: Yes (Other)
  Sender: FDA-Public Use
  Company Number: US-JNJFOC-20181203225

PATIENT
  Sex: Male

DRUGS (1)
  1. IMBRUVICA [Suspect]
     Active Substance: IBRUTINIB
     Indication: MANTLE CELL LYMPHOMA
     Dosage: 140 MG, QD
     Route: 048

REACTIONS (5)
  - Hallucinations, mixed [Recovering/Resolving]
  - Off label use [Unknown]
  - Thyroid cancer [Recovering/Resolving]
  - Extra dose administered [Unknown]
  - Incorrect dose administered [Unknown]
